FAERS Safety Report 9660121 (Version 1)
Quarter: 2013Q4

REPORT INFORMATION
  Report Type: Spontaneous
  Country: US (occurrence: US)
  Receive Date: 20131031
  Receipt Date: 20131031
  Transmission Date: 20140711
  Serious: No
  Sender: FDA-Public Use
  Company Number: US-ABBVIE-13P-163-1157287-00

PATIENT
  Sex: Female

DRUGS (1)
  1. CLARITHROMYCIN [Suspect]
     Indication: PRODUCT USED FOR UNKNOWN INDICATION

REACTIONS (2)
  - Cough [Not Recovered/Not Resolved]
  - Sleep disorder [Not Recovered/Not Resolved]
